FAERS Safety Report 22595434 (Version 1)
Quarter: 2023Q2

REPORT INFORMATION
  Report Type: Spontaneous
  Country: US (occurrence: None)
  Receive Date: 20230612
  Receipt Date: 20230612
  Transmission Date: 20230721
  Serious: Yes (Hospitalization)
  Sender: FDA-Public Use
  Company Number: None

PATIENT
  Age: 82 Year
  Sex: Female
  Weight: 49.05 kg

DRUGS (5)
  1. LOKELMA [Suspect]
     Active Substance: SODIUM ZIRCONIUM CYCLOSILICATE
     Indication: Hyperkalaemia
     Dosage: OTHER QUANTITY : 1 PACKET;?OTHER FREQUENCY : 3 TIMES A WEEK;?
     Route: 048
  2. MINOXIDIL [Concomitant]
     Active Substance: MINOXIDIL
  3. SEVELEMER [Concomitant]
  4. LIOTHYRONINE [Concomitant]
     Active Substance: LIOTHYRONINE
  5. LEVOTHYROXINE [Concomitant]
     Active Substance: LEVOTHYROXINE

REACTIONS (2)
  - Diarrhoea [None]
  - Blood potassium decreased [None]

NARRATIVE: CASE EVENT DATE: 20230529
